FAERS Safety Report 8013749-9 (Version None)
Quarter: 2011Q4

REPORT INFORMATION
  Report Type: 
  Country: None (occurrence: None)
  Receive Date: 20111229
  Receipt Date: 20111216
  Transmission Date: 20120403
  Serious: Yes (Hospitalization)
  Sender: FDA-Public Use
  Company Number: IN-ELI_LILLY_AND_COMPANY-IN201111007429

PATIENT
  Age: 60 Year
  Sex: Female

DRUGS (3)
  1. VITAMIN D [Concomitant]
     Indication: SUPPLEMENTATION THERAPY
     Dosage: UNK
  2. CALCIUM ACETATE [Concomitant]
     Indication: SUPPLEMENTATION THERAPY
     Dosage: UNK
  3. FORTEO [Suspect]
     Indication: OSTEOPOROSIS
     Dosage: 20 UG, QD
     Route: 058
     Dates: start: 20110601, end: 20111101

REACTIONS (5)
  - ABDOMINAL PAIN [None]
  - URINE OUTPUT DECREASED [None]
  - BACK PAIN [None]
  - NEPHROLITHIASIS [None]
  - FLATULENCE [None]
